FAERS Safety Report 5716011-X (Version None)
Quarter: 2008Q2

REPORT INFORMATION
  Report Type: 
  Country: None (occurrence: None)
  Receive Date: 20080422
  Receipt Date: 20080409
  Transmission Date: 20081010
  Serious: Yes (Congenital Anomaly)
  Sender: FDA-Public Use
  Company Number: 150002L08JPN

PATIENT
  Sex: Male

DRUGS (3)
  1. PROFASI HP [Suspect]
     Indication: IN VITRO FERTILISATION
     Dosage: 1000 IU, IVF
  2. FERTINORM P (MENOTROPHIN) [Suspect]
     Indication: IN VITRO FERTILISATION
     Dosage: IVF
  3. METFORMIN HCL [Concomitant]

REACTIONS (2)
  - MATERNAL DRUGS AFFECTING FOETUS [None]
  - OCULOAURICULOVERTEBRAL DYSPLASIA [None]
